FAERS Safety Report 7635793-3 (Version None)
Quarter: 2011Q3

REPORT INFORMATION
  Report Type: 
  Country: None (occurrence: None)
  Receive Date: 20110726
  Receipt Date: 20110719
  Transmission Date: 20111222
  Serious: Yes (Hospitalization, Other)
  Sender: FDA-Public Use
  Company Number: US-AMGEN-QUU432612

PATIENT
  Age: 69 Year
  Sex: Female

DRUGS (13)
  1. NPLATE [Suspect]
     Indication: IDIOPATHIC THROMBOCYTOPENIC PURPURA
     Dosage: 1 A?G/KG, UNK
     Dates: start: 20100622, end: 20100622
  2. PREDNISONE [Concomitant]
     Dosage: 10 MG, PRN
  3. PRILOSEC [Concomitant]
     Dosage: 20 MG, UNK
  4. CORTICOSTEROID NOS [Concomitant]
     Dosage: 1 A?G/KG, UNK
     Dates: start: 20080925
  5. LEVOXYL [Concomitant]
     Dosage: 100 UNK, QD
  6. HUMALOG [Concomitant]
     Dosage: UNK UNK, PRN
  7. VITAMIN D [Concomitant]
     Dosage: UNK
  8. SIMVASTATIN [Concomitant]
     Dosage: 80 MG, UNK
  9. HYDROCHLOROTHIAZIDE [Concomitant]
     Dosage: UNK UNK, QD
  10. VASOTEC [Concomitant]
     Dosage: 2.5 MG, QD
  11. ENALAPRIL MALEATE [Concomitant]
     Dosage: 10 MG, QD
  12. TRAMADOL HCL [Concomitant]
     Dosage: UNK UNK, PRN
  13. ASPIRIN [Concomitant]
     Dosage: 325 UNK, UNK

REACTIONS (4)
  - CEREBRAL ARTERY THROMBOSIS [None]
  - THALAMIC INFARCTION [None]
  - EMBOLISM [None]
  - THROMBOSIS [None]
